FAERS Safety Report 8846772 (Version 2)
Quarter: 2012Q4

REPORT INFORMATION
  Report Type: 
  Country: US (occurrence: None)
  Receive Date: 20121018
  Receipt Date: 20121214
  Transmission Date: 20130627
  Serious: Yes (Death)
  Sender: FDA-Public Use
  Company Number: None

PATIENT
  Age: 80 Year
  Sex: Female
  Weight: 70.31 kg

DRUGS (4)
  1. METHYLPREDNISOLONE [Suspect]
  2. OMNIPAQUE [Suspect]
  3. LIDOCAINE [Suspect]
  4. KENALOG [Suspect]

REACTIONS (5)
  - Injection site pain [None]
  - Pneumonia [None]
  - Renal failure [None]
  - Multi-organ failure [None]
  - Legionella test [None]
